FAERS Safety Report 15183905 (Version 1)
Quarter: 2018Q3

REPORT INFORMATION
  Report Type: Spontaneous
  Country: JP (occurrence: JP)
  Receive Date: 20180723
  Receipt Date: 20180723
  Transmission Date: 20181010
  Serious: Yes (Hospitalization, Other)
  Sender: FDA-Public Use
  Company Number: JP-SA-2018SA169493

PATIENT
  Age: 39 Year
  Sex: Female

DRUGS (2)
  1. TRIAMCINOLONE ACETONIDE. [Suspect]
     Active Substance: TRIAMCINOLONE ACETONIDE
     Indication: UVEITIS
  2. METHOTREXATE. [Suspect]
     Active Substance: METHOTREXATE
     Indication: RHEUMATOID ARTHRITIS

REACTIONS (10)
  - Interleukin level increased [Unknown]
  - Drug resistance [Unknown]
  - Epstein-Barr virus infection [Unknown]
  - Visual impairment [Unknown]
  - Visual acuity reduced [Unknown]
  - Uveitis [Unknown]
  - Ocular lymphoma [Unknown]
  - Vitreous opacities [Unknown]
  - Keratic precipitates [Unknown]
  - Anterior chamber cell [Unknown]

NARRATIVE: CASE EVENT DATE: 2010
